FAERS Safety Report 9158198 (Version 3)
Quarter: 2013Q2

REPORT INFORMATION
  Report Type: Spontaneous
  Country: US (occurrence: US)
  Receive Date: 20130312
  Receipt Date: 20130503
  Transmission Date: 20140414
  Serious: Yes (Death, Hospitalization)
  Sender: FDA-Public Use
  Company Number: US-GILEAD-2013-0071465

PATIENT
  Age: 70 Year
  Sex: Female

DRUGS (3)
  1. LETAIRIS [Suspect]
     Indication: PULMONARY ARTERIAL HYPERTENSION
     Dosage: 5 MG, QD
     Dates: start: 20130214
  2. LETAIRIS [Suspect]
     Dosage: 5 MG, UNK
     Dates: start: 20130212, end: 20130315
  3. REVATIO [Concomitant]

REACTIONS (2)
  - Dyspnoea [Fatal]
  - Fatigue [Unknown]
